FAERS Safety Report 6960570-6 (Version None)
Quarter: 2010Q3

REPORT INFORMATION
  Report Type: 
  Country: None (occurrence: None)
  Receive Date: 20100817
  Receipt Date: 20100519
  Transmission Date: 20110219
  Serious: Yes (Other)
  Sender: FDA-Public Use
  Company Number: 20108862

PATIENT
  Age: 50 Year
  Sex: Female

DRUGS (3)
  1. LIORESAL [Suspect]
     Indication: MUSCLE SPASTICITY
     Dosage: 95.36 MCG, DAILY, INTRATHECAL
     Route: 037
  2. FENTANYL CITRATE [Concomitant]
  3. BUPIVACAINE HCL [Concomitant]

REACTIONS (1)
  - PAIN [None]
